FAERS Safety Report 9229065 (Version 8)
Quarter: 2017Q3

REPORT INFORMATION
  Report Type: Report from Study
  Country: JP (occurrence: JP)
  Receive Date: 20130412
  Receipt Date: 20170804
  Transmission Date: 20171128
  Serious: Yes (Hospitalization, Other)
  Sender: FDA-Public Use
  Company Number: JP-AMGEN-JPNCT2013025778

PATIENT
  Age: 46 Year
  Sex: Female
  Weight: 63 kg

DRUGS (48)
  1. ROMIPLOSTIM [Suspect]
     Active Substance: ROMIPLOSTIM
     Dosage: 4 MUG/KG, QWK
     Route: 058
     Dates: start: 20120321
  2. TAKEPRON [Concomitant]
     Active Substance: LANSOPRAZOLE
     Dosage: 60 MG, UNK
     Route: 048
     Dates: start: 20120315
  3. KENKETU GLOVENIN-I [Concomitant]
     Active Substance: HUMAN IMMUNOGLOBULIN G
     Indication: IMMUNE THROMBOCYTOPENIC PURPURA
     Dosage: 20000 MG, UNK
     Route: 042
     Dates: start: 20130312
  4. ROMIPLOSTIM [Suspect]
     Active Substance: ROMIPLOSTIM
     Dosage: 7 MUG/KG, QWK
     Route: 058
     Dates: start: 20120523
  5. PREDONINE [Suspect]
     Active Substance: PREDNISOLONE
     Dosage: 20 MG, UNK
     Route: 048
     Dates: start: 20120822
  6. PREDONINE [Suspect]
     Active Substance: PREDNISOLONE
     Dosage: 30 MG, UNK
     Route: 048
     Dates: start: 20130107
  7. PREDONINE [Suspect]
     Active Substance: PREDNISOLONE
     Dosage: 10 MG, UNK
     Route: 048
     Dates: start: 20130410, end: 20130423
  8. LUNABELL [Concomitant]
     Active Substance: ETHINYL ESTRADIOL\NORETHINDRONE
     Indication: ENDOMETRIOSIS
     Dosage: UNK
     Route: 048
  9. REVOLADE [Concomitant]
     Active Substance: ELTROMBOPAG
     Dosage: 50 MG, UNK
     Route: 048
     Dates: start: 20130205, end: 20130618
  10. REVOLADE [Concomitant]
     Active Substance: ELTROMBOPAG
     Dosage: 50 MG, UNK
     Route: 048
     Dates: start: 20130812
  11. BENET [Concomitant]
     Active Substance: RISEDRONATE SODIUM
     Indication: PROPHYLAXIS
     Dosage: UNK
     Route: 048
  12. BACTRAMIN [Concomitant]
     Active Substance: SULFAMETHOXAZOLE\TRIMETHOPRIM
     Indication: PROPHYLAXIS
     Dosage: UNK
     Route: 048
  13. IMURAN [Concomitant]
     Active Substance: AZATHIOPRINE
     Dosage: 50 MG, UNK
     Route: 048
     Dates: start: 20130319, end: 20130423
  14. PREDONINE [Suspect]
     Active Substance: PREDNISOLONE
     Dosage: 30 MG, UNK
     Route: 048
     Dates: start: 20120502
  15. FLUCONAZOLE. [Concomitant]
     Active Substance: FLUCONAZOLE
     Indication: PROPHYLAXIS
     Dosage: UNK
     Route: 048
  16. TAKEPRON [Concomitant]
     Active Substance: LANSOPRAZOLE
     Indication: IMMUNE THROMBOCYTOPENIC PURPURA
     Dosage: 60 MG, UNK
     Route: 048
     Dates: start: 20120315
  17. PREDONINE [Suspect]
     Active Substance: PREDNISOLONE
     Dosage: 25 MG, UNK
     Route: 048
     Dates: start: 20130129
  18. PREDONINE [Suspect]
     Active Substance: PREDNISOLONE
     Dosage: 20 MG, UNK
     Route: 048
     Dates: start: 20130212, end: 20130326
  19. REVOLADE [Concomitant]
     Active Substance: ELTROMBOPAG
     Indication: IMMUNE THROMBOCYTOPENIC PURPURA
     Dosage: 50 MG, UNK
     Route: 048
     Dates: start: 20110202
  20. NEORAL [Concomitant]
     Active Substance: CYCLOSPORINE
     Dosage: 50 MG, UNK
     Route: 048
     Dates: start: 20130226, end: 20130305
  21. KLARICID [Concomitant]
     Active Substance: CLARITHROMYCIN
     Indication: IMMUNE THROMBOCYTOPENIC PURPURA
     Dosage: 400 MG, UNK
     Route: 048
     Dates: start: 20120315, end: 20120321
  22. IMURAN [Concomitant]
     Active Substance: AZATHIOPRINE
     Indication: IMMUNE THROMBOCYTOPENIC PURPURA
     Dosage: 100 MG, UNK
     Route: 048
     Dates: start: 20130319, end: 20130604
  23. ROMIPLOSTIM [Suspect]
     Active Substance: ROMIPLOSTIM
     Dosage: 3 MUG/KG, QD
     Route: 058
     Dates: start: 20120314
  24. ROMIPLOSTIM [Suspect]
     Active Substance: ROMIPLOSTIM
     Dosage: 5 MUG/KG, QWK
     Route: 058
     Dates: start: 20120404
  25. ROMIPLOSTIM [Suspect]
     Active Substance: ROMIPLOSTIM
     Dosage: 8 MUG/KG, QWK
     Route: 058
     Dates: start: 20120620
  26. KENKETU GLOVENIN-I [Suspect]
     Active Substance: HUMAN IMMUNOGLOBULIN G
     Indication: IMMUNE THROMBOCYTOPENIC PURPURA
     Dosage: 20000 MG, QD
     Route: 065
     Dates: start: 20120308, end: 20120312
  27. PREDONINE [Suspect]
     Active Substance: PREDNISOLONE
     Dosage: 25 MG, UNK
     Route: 048
     Dates: start: 20120418
  28. PREDONINE [Suspect]
     Active Substance: PREDNISOLONE
     Dosage: 25 MG, UNK
     Route: 048
     Dates: start: 20120627
  29. PREDONINE [Suspect]
     Active Substance: PREDNISOLONE
     Dosage: 15 MG, UNK
     Route: 048
     Dates: start: 20120926
  30. PREDONINE [Suspect]
     Active Substance: PREDNISOLONE
     Dosage: 15 MG, UNK
     Route: 048
     Dates: start: 20130327, end: 20130409
  31. REVOLADE [Concomitant]
     Active Substance: ELTROMBOPAG
     Dosage: 50 MG, UNK
     Route: 048
     Dates: start: 20110202, end: 20120221
  32. SAWACILLIN [Concomitant]
     Active Substance: AMOXICILLIN
     Indication: IMMUNE THROMBOCYTOPENIC PURPURA
     Dosage: 1500 MG, UNK
     Route: 048
     Dates: start: 20120315, end: 20120321
  33. ROMIPLOSTIM [Suspect]
     Active Substance: ROMIPLOSTIM
     Indication: PRODUCT USED FOR UNKNOWN INDICATION
     Dosage: 1 MUG/KG, QWK
     Route: 058
     Dates: start: 20120222
  34. ROMIPLOSTIM [Suspect]
     Active Substance: ROMIPLOSTIM
     Dosage: 10 MUG/KG, QWK
     Route: 058
     Dates: start: 20130122, end: 20130130
  35. PREDONINE [Suspect]
     Active Substance: PREDNISOLONE
     Dosage: 30 MG, UNK
     Route: 048
     Dates: start: 20120316
  36. PARIET [Concomitant]
     Active Substance: RABEPRAZOLE SODIUM
     Indication: PROPHYLAXIS
     Dosage: UNK
     Route: 048
  37. NEORAL [Concomitant]
     Active Substance: CYCLOSPORINE
     Dosage: 200 MG, UNK
     Route: 048
     Dates: start: 20130306
  38. SOL-MELCORT [Concomitant]
     Active Substance: METHYLPREDNISOLONE SODIUM SUCCINATE
     Indication: IMMUNE THROMBOCYTOPENIC PURPURA
     Dosage: 500 MG, UNK
     Route: 042
     Dates: start: 20130104, end: 20130106
  39. ROMIPLOSTIM [Suspect]
     Active Substance: ROMIPLOSTIM
     Dosage: 10 MUG/KG, QWK
     Route: 058
     Dates: start: 20130709, end: 20130806
  40. PREDONINE [Suspect]
     Active Substance: PREDNISOLONE
     Dosage: 10 MG, UNK
     Route: 048
     Dates: start: 20121031
  41. PREDONINE [Suspect]
     Active Substance: PREDNISOLONE
     Dosage: 5 MG, UNK
     Route: 048
     Dates: start: 20130424
  42. ROMIPLOSTIM [Suspect]
     Active Substance: ROMIPLOSTIM
     Dosage: 2 MUG/KG, QD
     Route: 058
     Dates: start: 20120307
  43. ROMIPLOSTIM [Suspect]
     Active Substance: ROMIPLOSTIM
     Dosage: 6 MUG/KG, QWK
     Route: 058
     Dates: start: 20120502
  44. ROMIPLOSTIM [Suspect]
     Active Substance: ROMIPLOSTIM
     Dosage: 9 MUG/KG, QWK
     Route: 058
     Dates: start: 20130109
  45. PREDONINE [Suspect]
     Active Substance: PREDNISOLONE
     Indication: IMMUNE THROMBOCYTOPENIC PURPURA
     Dosage: 10 MG, UNK
     Route: 048
     Dates: start: 20120313, end: 20130507
  46. NEORAL [Concomitant]
     Active Substance: CYCLOSPORINE
     Indication: IMMUNE THROMBOCYTOPENIC PURPURA
     Dosage: 200 MG, UNK
     Route: 048
     Dates: start: 20130124, end: 20130314
  47. NEORAL [Concomitant]
     Active Substance: CYCLOSPORINE
     Dosage: 200 MG, UNK
     Route: 048
     Dates: start: 20130220, end: 20130225
  48. IMURAN [Concomitant]
     Active Substance: AZATHIOPRINE
     Dosage: 100 MG, UNK
     Route: 048
     Dates: start: 20130424, end: 20130604

REACTIONS (17)
  - Gastrointestinal haemorrhage [Recovered/Resolved]
  - Hypertension [Recovered/Resolved]
  - Muscle spasms [Recovered/Resolved]
  - Insomnia [Recovering/Resolving]
  - Headache [Recovered/Resolved]
  - White blood cell count increased [Recovered/Resolved]
  - Chest discomfort [Recovered/Resolved]
  - Back pain [Recovered/Resolved]
  - Thrombocytopenia [Not Recovered/Not Resolved]
  - Thrombocytopenia [Recovering/Resolving]
  - Constipation [Not Recovered/Not Resolved]
  - Pharyngitis [Recovered/Resolved]
  - Neutrophil count increased [Recovered/Resolved]
  - White blood cell count increased [Recovered/Resolved]
  - Neutrophil count increased [Recovered/Resolved]
  - Ovarian cancer [Recovering/Resolving]
  - Bone marrow myelogram abnormal [Unknown]

NARRATIVE: CASE EVENT DATE: 20120309
